FAERS Safety Report 6168039-6 (Version None)
Quarter: 2009Q2

REPORT INFORMATION
  Report Type: 
  Country: None (occurrence: None)
  Receive Date: 20090424
  Receipt Date: 20090217
  Transmission Date: 20091009
  Serious: Yes (Other)
  Sender: FDA-Public Use
  Company Number: 2009VX000300

PATIENT
  Age: 1 Month
  Sex: Male

DRUGS (1)
  1. DIASTAT [Suspect]
     Indication: CONVULSION
     Dosage: 1.25 MG ; PRN ; RTL
     Dates: start: 20060322, end: 20060430

REACTIONS (2)
  - CONVULSION [None]
  - DRUG DISPENSING ERROR [None]
